FAERS Safety Report 8262806 (Version 3)
Quarter: 2013Q2

REPORT INFORMATION
  Report Type: Spontaneous
  Country: US (occurrence: US)
  Receive Date: 20111124
  Receipt Date: 20130429
  Transmission Date: 20140414
  Serious: Yes (Other)
  Sender: FDA-Public Use
  Company Number: US-ROCHE-1015949

PATIENT
  Sex: Male
  Weight: 186 kg

DRUGS (8)
  1. ACCUTANE [Suspect]
     Indication: ACNE
     Route: 065
     Dates: start: 1990, end: 1997
  2. ACCUTANE [Suspect]
     Route: 065
     Dates: start: 19961108, end: 19970514
  3. ACCUTANE [Suspect]
     Route: 065
     Dates: start: 19991018
  4. DARVOCET [Concomitant]
  5. TOLECTIN [Concomitant]
  6. FLEXERIL [Concomitant]
  7. ATENOLOL [Concomitant]
  8. ZANTAC [Concomitant]

REACTIONS (6)
  - Colitis ulcerative [Unknown]
  - Inflammatory bowel disease [Unknown]
  - Injury [Unknown]
  - Ankylosing spondylitis [Unknown]
  - Depression [Unknown]
  - Dry skin [Unknown]
